FAERS Safety Report 7133941-5 (Version None)
Quarter: 2010Q4

REPORT INFORMATION
  Report Type: 
  Country: None (occurrence: None)
  Receive Date: 20101203
  Receipt Date: 20100908
  Transmission Date: 20110411
  Serious: Yes (Hospitalization)
  Sender: FDA-Public Use
  Company Number: US-BAYER-200941440NA

PATIENT

DRUGS (12)
  1. YAZ [Suspect]
     Indication: CONTRACEPTION
     Route: 048
     Dates: start: 20090601, end: 20091001
  2. WELLBUTRIN [Concomitant]
     Dosage: 60 MG (DAILY DOSE), BID, ORAL
     Route: 048
     Dates: start: 20090728
  3. BUSPAR [Concomitant]
     Dosage: 15 MG (DAILY DOSE), QD, ORAL
     Route: 048
     Dates: start: 20090728
  4. NORETHINDRONE [Concomitant]
     Dosage: LAST REFILL: 29-MAR-2010
     Dates: start: 20091006
  5. ACETAMINOPHEN W/ CODEINE [Concomitant]
  6. IBUPROFEN [Concomitant]
  7. NIFEDIPINE [Concomitant]
  8. BUPROPION HCL [Concomitant]
  9. BUSPIRONE [Concomitant]
  10. SUCRALFATE [Concomitant]
  11. FAMOTIDINE [Concomitant]
  12. TRAMADOL [Concomitant]

REACTIONS (4)
  - CHOLECYSTITIS CHRONIC [None]
  - CHOLELITHIASIS [None]
  - NEPHROLITHIASIS [None]
  - PANCREATITIS [None]
